FAERS Safety Report 15104308 (Version 5)
Quarter: 2019Q3

REPORT INFORMATION
  Report Type: Report from Study
  Country: US (occurrence: US)
  Receive Date: 20180703
  Receipt Date: 20190715
  Transmission Date: 20191004
  Serious: Yes (Hospitalization, Other)
  Sender: FDA-Public Use
  Company Number: US-ACTELION-A-NJ2018-174553

PATIENT
  Age: 56 Year
  Sex: Male

DRUGS (2)
  1. UPTRAVI [Suspect]
     Active Substance: SELEXIPAG
     Indication: PULMONARY ARTERIAL HYPERTENSION
     Dosage: 200 MCG, BID
     Route: 048
     Dates: start: 20180613, end: 20180728
  2. OPSUMIT [Suspect]
     Active Substance: MACITENTAN
     Indication: PULMONARY ARTERIAL HYPERTENSION
     Dosage: 10 MG, QD
     Route: 048
     Dates: start: 20180109

REACTIONS (9)
  - Colostomy [Recovering/Resolving]
  - Intestinal perforation [Recovering/Resolving]
  - Abdominal infection [Unknown]
  - Hypotension [Unknown]
  - Abdominal pain upper [Recovering/Resolving]
  - Gastric infection [Unknown]
  - Clostridium difficile colitis [Unknown]
  - Dialysis [Unknown]
  - Large intestine polyp [Recovering/Resolving]

NARRATIVE: CASE EVENT DATE: 20180630
